FAERS Safety Report 5232737-9 (Version None)
Quarter: 2007Q1

REPORT INFORMATION
  Report Type: 
  Country: None (occurrence: None)
  Receive Date: 20070206
  Receipt Date: 20070206
  Transmission Date: 20070707
  Serious: Yes (Hospitalization)
  Sender: FDA-Public Use
  Company Number: None

PATIENT
  Sex: Female

DRUGS (1)
  1. ATGAM [Suspect]
     Indication: KIDNEY TRANSPLANT REJECTION
     Dosage: 125 MG DAILY IV
     Route: 042
     Dates: start: 20070107, end: 20070116

REACTIONS (3)
  - ARTHRALGIA [None]
  - ERYTHEMA [None]
  - SERUM SICKNESS [None]
